FAERS Safety Report 16699290 (Version 1)
Quarter: 2019Q3

REPORT INFORMATION
  Report Type: Spontaneous
  Country: IE (occurrence: IE)
  Receive Date: 20190813
  Receipt Date: 20190813
  Transmission Date: 20191004
  Serious: Yes (Other)
  Sender: FDA-Public Use
  Company Number: IE-BAUSCH-BL-2019-021924

PATIENT
  Age: 39 Year
  Sex: Male

DRUGS (3)
  1. METHYLPREDNISOLONE. [Suspect]
     Active Substance: METHYLPREDNISOLONE
     Indication: CARDIAC SARCOIDOSIS
     Dosage: 2 DAYS PRIOR TO THE ICD THERAPIES
     Route: 042
  2. PREDNISOLONE. [Suspect]
     Active Substance: PREDNISOLONE
     Indication: CARDIAC SARCOIDOSIS
     Route: 048
  3. SOTALOL. [Concomitant]
     Active Substance: SOTALOL
     Indication: CONGESTIVE CARDIOMYOPATHY

REACTIONS (1)
  - Ventricular tachycardia [Unknown]
